FAERS Safety Report 6106603-0 (Version None)
Quarter: 2009Q1

REPORT INFORMATION
  Report Type: 
  Country: None (occurrence: None)
  Receive Date: 20090302
  Receipt Date: 20090219
  Transmission Date: 20090719
  Serious: Yes (Hospitalization, Disabling)
  Sender: FDA-Public Use
  Company Number: 005454

PATIENT
  Age: 87 Year
  Sex: Male

DRUGS (7)
  1. PLETAL [Suspect]
     Indication: ARTERIOSCLEROSIS OBLITERANS
     Dosage: 100 MG, BID ORAL
     Route: 048
     Dates: start: 20081206, end: 20081227
  2. NEUMETHYCOLE (MECOBALAMIN) TABLET [Concomitant]
  3. MAGNESIUM OXIDE (MAGNESIUM OXIDE) POWDER FOR ORAL SOLUTION [Concomitant]
  4. NORVASC [Concomitant]
  5. LENDEM TABLET [Concomitant]
  6. SENEVACUL (SENNOSIDE A+B) TABLET [Concomitant]
  7. FLOMOX (CEFCAPENE PIVOXIL HYDROCHLORIDE) TABLET [Concomitant]

REACTIONS (8)
  - BLADDER HYPERTROPHY [None]
  - CARDIAC FAILURE [None]
  - PAIN IN EXTREMITY [None]
  - PERIPHERAL ARTERIAL OCCLUSIVE DISEASE [None]
  - PLEURAL EFFUSION [None]
  - PULMONARY OEDEMA [None]
  - SUPRAVENTRICULAR EXTRASYSTOLES [None]
  - TACHYCARDIA [None]
